FAERS Safety Report 9719922 (Version 7)
Quarter: 2014Q1

REPORT INFORMATION
  Report Type: Spontaneous
  Country: US (occurrence: US)
  Receive Date: 20131128
  Receipt Date: 20140325
  Transmission Date: 20141002
  Serious: Yes (Hospitalization)
  Sender: FDA-Public Use
  Company Number: US-JNJFOC-20131113163

PATIENT
  Age: 71 Year
  Sex: Male
  Weight: 68.04 kg

DRUGS (6)
  1. XARELTO [Suspect]
     Indication: CEREBROVASCULAR ACCIDENT PROPHYLAXIS
     Route: 048
     Dates: start: 20130203, end: 20131030
  2. XARELTO [Suspect]
     Indication: ATRIAL FIBRILLATION
     Route: 048
     Dates: start: 20130203, end: 20131030
  3. XARELTO [Suspect]
     Indication: TRANSIENT ISCHAEMIC ATTACK
     Route: 048
     Dates: start: 20130203, end: 20131030
  4. ASPIRIN [Suspect]
     Indication: PRODUCT USED FOR UNKNOWN INDICATION
     Route: 065
  5. SIMVASTATIN [Concomitant]
     Indication: CEREBROVASCULAR ACCIDENT
     Route: 048
     Dates: start: 20130203, end: 20140108
  6. AMLODIPINE [Concomitant]
     Route: 048
     Dates: start: 201302

REACTIONS (8)
  - Muscle haemorrhage [Not Recovered/Not Resolved]
  - Gastrointestinal haemorrhage [Unknown]
  - Pain [Not Recovered/Not Resolved]
  - Abnormal loss of weight [Not Recovered/Not Resolved]
  - Pain in extremity [Not Recovered/Not Resolved]
  - Hypoaesthesia [Not Recovered/Not Resolved]
  - Retroperitoneal haemorrhage [Recovered/Resolved]
  - Hypokinesia [Unknown]
